FAERS Safety Report 6202488-2 (Version None)
Quarter: 2009Q2

REPORT INFORMATION
  Report Type: 
  Country: None (occurrence: None)
  Receive Date: 20090518
  Receipt Date: 20090317
  Transmission Date: 20091009
  Serious: No
  Sender: FDA-Public Use
  Company Number: WAES 0903USA02946

PATIENT
  Age: 71 Year
  Sex: Female

DRUGS (7)
  1. JANUVIA [Suspect]
     Indication: TYPE 2 DIABETES MELLITUS
     Dosage: 100 MG/DAILY/PO
     Route: 048
     Dates: start: 20090306
  2. ATIVAN [Concomitant]
  3. AVALIDE [Concomitant]
  4. PROCARDIA [Concomitant]
  5. ASPIRIN [Concomitant]
  6. CLONIDINE [Concomitant]
  7. GLYBURIDE (+) METFORMIN HYDROCHL [Concomitant]

REACTIONS (3)
  - HEART RATE INCREASED [None]
  - PANIC ATTACK [None]
  - VERTIGO [None]
